FAERS Safety Report 20572997 (Version 1)
Quarter: 2022Q1

REPORT INFORMATION
  Report Type: Spontaneous
  Country: US (occurrence: None)
  Receive Date: 20220309
  Receipt Date: 20220309
  Transmission Date: 20220424
  Serious: Yes (Hospitalization)
  Sender: FDA-Public Use
  Company Number: None

PATIENT
  Sex: Male
  Weight: 68 kg

DRUGS (5)
  1. FILGRASTIM [Suspect]
     Active Substance: FILGRASTIM
     Dates: end: 20210110
  2. FILGRASTIM [Suspect]
     Active Substance: FILGRASTIM
  3. IFOSFAMIDE [Suspect]
     Active Substance: IFOSFAMIDE
     Dates: end: 20210104
  4. TAXOL [Suspect]
     Active Substance: PACLITAXEL
     Dates: end: 20210101
  5. LENOGRASTIM [Concomitant]
     Active Substance: LENOGRASTIM

REACTIONS (2)
  - Back pain [None]
  - Bone pain [None]

NARRATIVE: CASE EVENT DATE: 20210110
